FAERS Safety Report 14319193 (Version 1)
Quarter: 2017Q4

REPORT INFORMATION
  Report Type: Spontaneous
  Country: US (occurrence: US)
  Receive Date: 20171222
  Receipt Date: 20171222
  Transmission Date: 20180321
  Serious: No
  Sender: FDA-Public Use
  Company Number: US-BAYER-2017-246906

PATIENT
  Age: 45 Year
  Sex: Female

DRUGS (2)
  1. EOVIST [Suspect]
     Active Substance: GADOXETATE DISODIUM
     Indication: NUCLEAR MAGNETIC RESONANCE IMAGING LIVER
     Dosage: 8 ML, ONCE
     Route: 042
     Dates: start: 20171208, end: 20171208
  2. EOVIST [Suspect]
     Active Substance: GADOXETATE DISODIUM
     Indication: HEPATIC MASS

REACTIONS (4)
  - Pruritus [Recovered/Resolved]
  - Swelling [None]
  - Urticaria [Recovering/Resolving]
  - Erythema [None]

NARRATIVE: CASE EVENT DATE: 20171208
